FAERS Safety Report 7247798-5 (Version None)
Quarter: 2011Q1

REPORT INFORMATION
  Report Type: 
  Country: None (occurrence: None)
  Receive Date: 20110127
  Receipt Date: 20081001
  Transmission Date: 20110831
  Serious: Yes (Death)
  Sender: FDA-Public Use
  Company Number: US-BAYER-2011-006289

PATIENT
  Sex: Female

DRUGS (1)
  1. TRASYLOL,TRASYLOL [Suspect]
     Indication: SURGERY
     Dosage: UNK
     Route: 042
     Dates: start: 20020917

REACTIONS (8)
  - HEART VALVE OPERATION [None]
  - EMOTIONAL DISTRESS [None]
  - CORONARY ARTERY BYPASS [None]
  - ANXIETY [None]
  - STRESS [None]
  - PAIN [None]
  - CARDIAC FAILURE [None]
  - INJURY [None]
